FAERS Safety Report 6600270-5 (Version None)
Quarter: 2010Q1

REPORT INFORMATION
  Report Type: 
  Country: None (occurrence: None)
  Receive Date: 20100224
  Receipt Date: 20100115
  Transmission Date: 20100710
  Serious: Yes (Hospitalization, Other)
  Sender: FDA-Public Use
  Company Number: US-BAXTER-2009BH005090

PATIENT
  Age: 54 Year
  Sex: Male
  Weight: 60 kg

DRUGS (25)
  1. HEPARIN SODIUM INJECTION [Suspect]
     Indication: CRANIECTOMY
     Route: 058
     Dates: start: 20070906, end: 20070908
  2. HEPARIN SODIUM INJECTION [Suspect]
     Indication: SURGERY
     Route: 058
     Dates: start: 20070906, end: 20070908
  3. HEPARIN SODIUM INJECTION [Suspect]
     Indication: METASTASIS
     Route: 058
     Dates: start: 20070906, end: 20070908
  4. HEPARIN SODIUM INJECTION [Suspect]
     Indication: THROMBOSIS PROPHYLAXIS
     Route: 058
     Dates: start: 20070906, end: 20070908
  5. HEPARIN SODIUM INJECTION [Suspect]
     Route: 058
     Dates: start: 20070909, end: 20070909
  6. HEPARIN SODIUM INJECTION [Suspect]
     Route: 058
     Dates: start: 20070909, end: 20070909
  7. HEPARIN SODIUM INJECTION [Suspect]
     Route: 058
     Dates: start: 20070909, end: 20070909
  8. HEPARIN SODIUM INJECTION [Suspect]
     Route: 058
     Dates: start: 20070909, end: 20070909
  9. HEPARIN SODIUM INJECTION [Suspect]
     Route: 058
     Dates: start: 20070912, end: 20090913
  10. HEPARIN SODIUM INJECTION [Suspect]
     Route: 058
     Dates: start: 20070912, end: 20090913
  11. HEPARIN SODIUM INJECTION [Suspect]
     Route: 058
     Dates: start: 20070912, end: 20090913
  12. HEPARIN SODIUM INJECTION [Suspect]
     Route: 058
     Dates: start: 20070912, end: 20090913
  13. PREGABALIN [Concomitant]
     Indication: DRUG USE FOR UNKNOWN INDICATION
     Route: 065
  14. PREGABALIN [Concomitant]
     Route: 065
  15. MULTI-VITAMINS [Concomitant]
     Indication: DRUG USE FOR UNKNOWN INDICATION
     Route: 065
  16. PHENYTOIN [Concomitant]
     Indication: DRUG USE FOR UNKNOWN INDICATION
     Route: 065
  17. INSULIN [Concomitant]
     Indication: DRUG USE FOR UNKNOWN INDICATION
     Route: 065
  18. DEXAMETHASONE [Concomitant]
     Indication: DRUG USE FOR UNKNOWN INDICATION
     Route: 065
  19. DEXAMETHASONE [Concomitant]
     Route: 065
  20. ANCEF [Concomitant]
     Indication: DRUG USE FOR UNKNOWN INDICATION
     Route: 065
  21. ASPIRIN [Concomitant]
     Indication: MUSCLE TWITCHING
     Route: 048
  22. DOCUSATE SODIUM [Concomitant]
     Indication: DRUG USE FOR UNKNOWN INDICATION
     Route: 048
     Dates: start: 20090905, end: 20090909
  23. PANTOPRAZOLE [Concomitant]
     Indication: DRUG USE FOR UNKNOWN INDICATION
     Route: 048
     Dates: start: 20090905
  24. SENNA [Concomitant]
     Indication: DRUG USE FOR UNKNOWN INDICATION
     Route: 048
     Dates: start: 20090904
  25. SIMVASTATIN [Concomitant]
     Indication: DRUG USE FOR UNKNOWN INDICATION
     Route: 048

REACTIONS (11)
  - ANXIETY [None]
  - COAGULATION TIME ABNORMAL [None]
  - CONVULSION [None]
  - DEEP VEIN THROMBOSIS [None]
  - HEADACHE [None]
  - HEPARIN-INDUCED THROMBOCYTOPENIA [None]
  - MUSCLE TWITCHING [None]
  - OEDEMA PERIPHERAL [None]
  - PERIORBITAL OEDEMA [None]
  - STRESS [None]
  - THROMBOSIS [None]
